FAERS Safety Report 17103352 (Version 1)
Quarter: 2019Q4

REPORT INFORMATION
  Report Type: Spontaneous
  Country: US (occurrence: US)
  Receive Date: 20191203
  Receipt Date: 20191203
  Transmission Date: 20200122
  Serious: No
  Sender: FDA-Public Use
  Company Number: US-009507513-1911USA011084

PATIENT
  Age: 70 Year
  Sex: Female

DRUGS (5)
  1. TICE BCG [Suspect]
     Active Substance: BACILLUS CALMETTE-GUERIN SUBSTRAIN TICE LIVE ANTIGEN
     Indication: BLADDER CANCER
     Dosage: ABOUT 20 CCS RETAINED FOR 2 HOURS
     Dates: start: 20191107
  2. HYDROCODONE [Concomitant]
     Active Substance: HYDROCODONE
  3. IBUPROFEN. [Concomitant]
     Active Substance: IBUPROFEN
  4. TICE BCG [Suspect]
     Active Substance: BACILLUS CALMETTE-GUERIN SUBSTRAIN TICE LIVE ANTIGEN
     Indication: BLADDER SQUAMOUS CELL CARCINOMA STAGE 0
  5. ASPIRIN. [Concomitant]
     Active Substance: ASPIRIN

REACTIONS (4)
  - Bladder disorder [Unknown]
  - Product leakage [Unknown]
  - Vaginal haemorrhage [Unknown]
  - Bladder pain [Unknown]

NARRATIVE: CASE EVENT DATE: 201911
